FAERS Safety Report 24466425 (Version 5)
Quarter: 2024Q4

REPORT INFORMATION
  Report Type: Spontaneous
  Country: US (occurrence: US)
  Receive Date: 20241018
  Receipt Date: 20241114
  Transmission Date: 20250114
  Serious: Yes (Death, Other)
  Sender: PFIZER
  Company Number: US-PFIZER INC-202400277622

PATIENT
  Age: 65 Year
  Sex: Male
  Weight: 100 kg

DRUGS (1)
  1. TIKOSYN [Suspect]
     Active Substance: DOFETILIDE
     Indication: Atrial fibrillation
     Dosage: TOOK 1 CAPSULE BY MOUTH EVERY 12 HOURS
     Route: 048
     Dates: start: 20220513

REACTIONS (3)
  - Subarachnoid haemorrhage [Fatal]
  - Cerebral aneurysm perforation [Fatal]
  - Off label use [Unknown]

NARRATIVE: CASE EVENT DATE: 20220513
